FAERS Safety Report 15011104 (Version 1)
Quarter: 2018Q2

REPORT INFORMATION
  Report Type: Spontaneous
  Country: US (occurrence: US)
  Receive Date: 20180614
  Receipt Date: 20180614
  Transmission Date: 20180711
  Serious: No
  Sender: FDA-Public Use
  Company Number: US-AKRON, INC.-2049412

PATIENT
  Sex: Female

DRUGS (1)
  1. DIABETIC TUSSIN DM MAXIMUM STRENGTH [Suspect]
     Active Substance: DEXTROMETHORPHAN HYDROBROMIDE\GUAIFENESIN
     Dates: start: 20180303

REACTIONS (11)
  - Neck injury [None]
  - Back injury [None]
  - Dizziness [None]
  - Limb injury [None]
  - Physiotherapy [None]
  - Joint injury [None]
  - Orthopaedic procedure [None]
  - Head injury [None]
  - Syncope [None]
  - Skeletal injury [None]
  - Investigation [None]
